FAERS Safety Report 13840674 (Version 7)
Quarter: 2017Q4

REPORT INFORMATION
  Report Type: Spontaneous
  Country: JP (occurrence: JP)
  Receive Date: 20170807
  Receipt Date: 20171129
  Transmission Date: 20180320
  Serious: Yes (Death, Life-Threatening, Hospitalization, Other)
  Sender: FDA-Public Use
  Company Number: JP-009507513-1705JPN002344J

PATIENT
  Age: 71 Year
  Sex: Female
  Weight: 49 kg

DRUGS (6)
  1. NEXIUM [Concomitant]
     Active Substance: ESOMEPRAZOLE MAGNESIUM
     Indication: PROPHYLAXIS
     Dosage: 20 MG, QD
     Route: 048
     Dates: start: 20170505, end: 20170518
  2. CALONAL [Concomitant]
     Active Substance: ACETAMINOPHEN
     Indication: LUNG ADENOCARCINOMA
     Dosage: 500 MG, TID
     Route: 048
     Dates: start: 20170502, end: 20170518
  3. MAGNESIUM OXIDE. [Concomitant]
     Active Substance: MAGNESIUM OXIDE
     Indication: PROPHYLAXIS
     Dosage: 250 MG, TID
     Route: 048
     Dates: start: 20170502, end: 20170518
  4. KEYTRUDA [Suspect]
     Active Substance: PEMBROLIZUMAB
     Indication: LUNG ADENOCARCINOMA
     Dosage: 200 MG, Q3W
     Route: 041
     Dates: start: 20170511, end: 20170527
  5. PRIMPERAN [Concomitant]
     Active Substance: METOCLOPRAMIDE HYDROCHLORIDE
     Indication: PROPHYLAXIS
     Dosage: 5 MG, TID
     Route: 048
     Dates: start: 20170502, end: 20170518
  6. DECADRON [Concomitant]
     Active Substance: DEXAMETHASONE
     Indication: PROPHYLAXIS
     Dosage: 4 MG, QD
     Route: 048
     Dates: start: 20170505, end: 20170511

REACTIONS (3)
  - Pulmonary embolism [Fatal]
  - Malignant neoplasm progression [Fatal]
  - Venous thrombosis limb [Unknown]

NARRATIVE: CASE EVENT DATE: 20170520
